FAERS Safety Report 8017546-X (Version None)
Quarter: 2011Q4

REPORT INFORMATION
  Report Type: 
  Country: None (occurrence: None)
  Receive Date: 20111228
  Receipt Date: 20111228
  Transmission Date: 20120403
  Serious: Yes (Other)
  Sender: FDA-Public Use
  Company Number: None

PATIENT
  Age: 60 Year
  Sex: Female

DRUGS (10)
  1. INSULIN PUMP-BASAL/BOLUS-HUMALOG [Concomitant]
  2. LEVOTHYROXINE SODIUM [Concomitant]
  3. DIOVAN [Concomitant]
  4. LYRICA [Suspect]
     Indication: NEUROPATHY PERIPHERAL
     Dosage: 50 MG BID PO
     Route: 048
     Dates: start: 20110401, end: 20110601
  5. MULTI-VITAMIN [Concomitant]
  6. LYRICA [Suspect]
     Indication: CARPAL TUNNEL SYNDROME
     Dosage: 25 MG BID PO
     Route: 048
     Dates: start: 20110101, end: 20110401
  7. LYRICA [Suspect]
     Dosage: 50 MG TID PO
     Route: 048
     Dates: start: 20110601, end: 20110901
  8. LACTULOSE [Concomitant]
  9. ASPIRIN [Concomitant]
  10. PRIMIDONE [Concomitant]

REACTIONS (4)
  - DYSSTASIA [None]
  - TREMOR [None]
  - AMNESIA [None]
  - SPEECH DISORDER [None]
